FAERS Safety Report 17314763 (Version 1)
Quarter: 2020Q1

REPORT INFORMATION
  Report Type: Spontaneous
  Country: US (occurrence: US)
  Receive Date: 20200124
  Receipt Date: 20200124
  Transmission Date: 20200409
  Serious: No
  Sender: FDA-Public Use
  Company Number: US-BIOGEN-2019BI00799858

PATIENT
  Sex: Female

DRUGS (1)
  1. TYSABRI [Suspect]
     Active Substance: NATALIZUMAB
     Indication: MULTIPLE SCLEROSIS
     Route: 065
     Dates: start: 20120515

REACTIONS (10)
  - Cognitive disorder [Unknown]
  - Frustration tolerance decreased [Unknown]
  - Fatigue [Unknown]
  - Product dose omission [Unknown]
  - Insomnia [Unknown]
  - Feeling of despair [Unknown]
  - Confusional state [Unknown]
  - Stress [Unknown]
  - Gastrointestinal disorder [Unknown]
  - Bladder disorder [Unknown]
